FAERS Safety Report 17878401 (Version 4)
Quarter: 2020Q3

REPORT INFORMATION
  Report Type: Spontaneous
  Country: FR (occurrence: FR)
  Receive Date: 20200610
  Receipt Date: 20200826
  Transmission Date: 20201103
  Serious: Yes (Hospitalization, Congenital Anomaly, Other)
  Sender: FDA-Public Use
  Company Number: FR-AUROBINDO-AUR-APL-2020-027793

PATIENT
  Age: 4 Day
  Sex: Male
  Weight: 2.03 kg

DRUGS (25)
  1. AMOXICILLIN. [Suspect]
     Active Substance: AMOXICILLIN
     Indication: ANTIBIOTIC THERAPY
     Dosage: UNK
     Route: 064
  2. SODIUM CHLORIDE. [Suspect]
     Active Substance: SODIUM CHLORIDE
     Indication: HODGKIN^S DISEASE
     Dosage: 20 MILLILITER (USED AS A VEHICLE FOR VINBLASTIN DRUG ADMINISTRATION)
     Route: 064
     Dates: start: 20171108
  3. DACARBAZINE. [Suspect]
     Active Substance: DACARBAZINE
     Indication: HODGKIN^S DISEASE
     Dosage: 375 MILLIGRAM/SQ. METER (IN 250 ML OF GLUCOSE 5% ON DAY1 AND DAY 15 OF THERAPY)
     Route: 064
     Dates: start: 20171108
  4. DACARBAZINE. [Suspect]
     Active Substance: DACARBAZINE
     Dosage: 730 MILLIGRAM, ONCE A DAY
     Route: 064
     Dates: start: 20171108
  5. DOXORUBICIN POWDER FOR SOLUTION FOR INFUSION [Suspect]
     Active Substance: DOXORUBICIN
     Indication: HODGKIN^S DISEASE
     Dosage: 25 MILLIGRAM/SQ. METER (IN 20 ML OF GLUCOSE 5% ON DAY 1 AND DAY 15 OF THERAPY)
     Route: 064
     Dates: start: 20171108
  6. DEXAMETHASONE. [Suspect]
     Active Substance: DEXAMETHASONE
     Indication: HODGKIN^S DISEASE
     Dosage: 10 MILLIGRAM, ONCE A DAY(ON DAY1 AND DAY 15 OF THERAPY)
     Route: 064
     Dates: start: 20171108
  7. ENOXAPARIN [Suspect]
     Active Substance: ENOXAPARIN
     Indication: PRODUCT USED FOR UNKNOWN INDICATION
     Dosage: 4000 INTERNATIONAL UNIT, ONCE A DAY,BID
     Route: 064
     Dates: start: 2017
  8. BLEOMYCIN [Suspect]
     Active Substance: BLEOMYCIN SULFATE
     Indication: HODGKIN^S DISEASE
     Dosage: 10 MILLIGRAM/SQ. METER ((IN 20 ML NACL ON DAY 1 AND DAY 15 OF THERAPY)
     Route: 064
     Dates: start: 20171108
  9. DOXORUBICIN POWDER FOR SOLUTION FOR INFUSION [Suspect]
     Active Substance: DOXORUBICIN
     Dosage: 48 MILLIGRAM, ONCE A DAY
     Route: 064
  10. PREDNISONE. [Suspect]
     Active Substance: PREDNISONE
     Indication: PRODUCT USED FOR UNKNOWN INDICATION
     Dosage: 40 MILLIGRAM, ONCE A DAY
     Route: 064
     Dates: end: 201711
  11. PREDNISONE. [Suspect]
     Active Substance: PREDNISONE
     Dosage: 80 MILLIGRAM, ONCE A DAY
     Route: 064
     Dates: start: 2017
  12. BLEOMYCIN [Suspect]
     Active Substance: BLEOMYCIN SULFATE
     Dosage: 19.2 MILLIGRAM, ONCE A DAY
     Route: 064
  13. VINBLASTINE SULFATE. [Interacting]
     Active Substance: VINBLASTINE SULFATE
     Dosage: 5 MILLIGRAM/SQ. METER (IN 20 ML NACL ON DAY 1 AND DAY 15 OF THERAPY)
     Route: 064
     Dates: start: 20171108
  14. GLUCOSE [Suspect]
     Active Substance: DEXTROSE
     Indication: HODGKIN^S DISEASE
     Dosage: 250 MILLILITER (USED AS A VEHICLE FOR DACARBAZINE DRUG ADMINISTRATION)
     Route: 064
     Dates: start: 20171108
  15. CAFFEINE. [Suspect]
     Active Substance: CAFFEINE
     Indication: PRODUCT USED FOR UNKNOWN INDICATION
     Dosage: UNK
     Route: 065
  16. LANSOPRAZOLE. [Suspect]
     Active Substance: LANSOPRAZOLE
     Indication: PRODUCT USED FOR UNKNOWN INDICATION
     Dosage: 30 MILLIGRAM, ONCE A DAY
     Route: 064
     Dates: start: 2017
  17. VALACICLOVIR [Suspect]
     Active Substance: VALACYCLOVIR HYDROCHLORIDE
     Indication: PRODUCT USED FOR UNKNOWN INDICATION
     Dosage: 500 MILLIGRAM, ONCE A DAY
     Route: 064
     Dates: start: 2017
  18. GLUCOSE [Suspect]
     Active Substance: DEXTROSE
     Dosage: 20 MILLILITER (USED AS A VEHICLE FOR DOXORUBICIN DRUG ADMINISTRATION)
     Route: 064
     Dates: start: 20171108
  19. VINBLASTINE SULFATE. [Interacting]
     Active Substance: VINBLASTINE SULFATE
     Indication: HODGKIN^S DISEASE
     Dosage: 10 MILLIGRAM, ONCE A DAY
     Route: 064
  20. ONDANSETRON [Suspect]
     Active Substance: ONDANSETRON
     Indication: PROPHYLAXIS OF NAUSEA AND VOMITING
     Dosage: 16 MILLIGRAM, DAILY (8 MG, BID)
     Route: 064
     Dates: start: 2017
  21. SODIUM CHLORIDE. [Suspect]
     Active Substance: SODIUM CHLORIDE
     Dosage: 20 MILLILITER (USED AS A VEHICLE FOR BLEOMYCIN DRUG ADMINISTRATION)
     Route: 064
     Dates: start: 20171108
  22. GLUCOSE [Suspect]
     Active Substance: DEXTROSE
     Dosage: 250 MILLILITER (USED AS A VEHICLE FOR DACARBAZINE DRUG ADMINISTRATION)
     Route: 064
     Dates: start: 20171108
  23. DEXAMETHASONE. [Suspect]
     Active Substance: DEXAMETHASONE
     Indication: PROPHYLAXIS OF NAUSEA AND VOMITING
  24. ONDANSETRON [Suspect]
     Active Substance: ONDANSETRON
     Indication: FOETAL EXPOSURE DURING PREGNANCY
     Dosage: UNK
     Route: 064
  25. ONDANSETRON [Suspect]
     Active Substance: ONDANSETRON
     Indication: PROPHYLAXIS OF NAUSEA AND VOMITING
     Dosage: 16 MILLIGRAM, ONCE A DAY
     Route: 064
     Dates: start: 20171108, end: 201711

REACTIONS (7)
  - Cardiac dysfunction [Recovered/Resolved]
  - Premature baby [Recovered/Resolved]
  - Foetal exposure during pregnancy [Recovered/Resolved]
  - Drug interaction [Recovered/Resolved]
  - Cardiotoxicity [Recovered/Resolved]
  - Troponin increased [Recovered/Resolved]
  - Off label use [Unknown]

NARRATIVE: CASE EVENT DATE: 2017
